FAERS Safety Report 10424296 (Version 3)
Quarter: 2014Q3

REPORT INFORMATION
  Report Type: Report from Study
  Country: BR (occurrence: BR)
  Receive Date: 20140902
  Receipt Date: 20140930
  Transmission Date: 20150326
  Serious: Yes (Other)
  Sender: FDA-Public Use
  Company Number: PHHY2014BR110496

PATIENT
  Sex: Male
  Weight: 52 kg

DRUGS (6)
  1. GARDENAL//PHENOBARBITAL [Suspect]
     Active Substance: PHENOBARBITAL
     Indication: DEPRESSION
  2. RECONTER [Suspect]
     Active Substance: ESCITALOPRAM OXALATE
     Indication: CONVULSION
     Dosage: 1 DF, DAILY
     Route: 048
  3. GARDENAL//PHENOBARBITAL [Suspect]
     Active Substance: PHENOBARBITAL
     Indication: CONVULSION
     Dosage: 1 DF, DAILY
     Route: 048
  4. TRILEPTAL [Suspect]
     Active Substance: OXCARBAZEPINE
     Indication: CONVULSION
     Dosage: 1.5 DF, BID
     Route: 048
  5. TRILEPTAL [Suspect]
     Active Substance: OXCARBAZEPINE
     Indication: DEPRESSION
  6. RECONTER [Suspect]
     Active Substance: ESCITALOPRAM OXALATE
     Indication: DEPRESSION

REACTIONS (1)
  - Epilepsy [Not Recovered/Not Resolved]
